FAERS Safety Report 8794342 (Version 1)
Quarter: 2012Q4

REPORT INFORMATION
  Report Type: 
  Country: US (occurrence: US)
  Receive Date: 20120917
  Receipt Date: 20120917
  Transmission Date: 20130627
  Serious: Yes (Other)
  Sender: FDA-Public Use
  Company Number: PHEH2011US013242

PATIENT
  Sex: Female

DRUGS (4)
  1. DIOVAN HCT [Suspect]
     Dosage: 1 DF (320 mg vals and 25 mg HCTZ), QD
  2. BABY ASPIRIN [Suspect]
     Dosage: 1 DF, BID
  3. METFORMIN [Concomitant]
  4. CRESTOR [Concomitant]
     Dosage: 5 mg, QD

REACTIONS (5)
  - Type 2 diabetes mellitus [Unknown]
  - Hypersensitivity [Unknown]
  - Sinusitis [Recovering/Resolving]
  - Headache [Unknown]
  - Multiple allergies [None]
